FAERS Safety Report 9361122 (Version 2)
Quarter: 2013Q3

REPORT INFORMATION
  Report Type: Spontaneous
  Country: US (occurrence: None)
  Receive Date: 20130618
  Receipt Date: 20130703
  Transmission Date: 20140515
  Serious: Yes (Other)
  Sender: FDA-Public Use
  Company Number: JPI-P-032814

PATIENT
  Age: 32 Year
  Sex: Female

DRUGS (6)
  1. XYREM [Suspect]
     Indication: CATAPLEXY
     Dosage: 4.5 GM (2.25 GM, 2 IN 1 D), ORAL
     Route: 048
     Dates: start: 20130425
  2. METHYLPHENIDATE HYDROCHLORIDE [Concomitant]
  3. ALBUTEROL [Concomitant]
  4. BECLOMETHASONE [Concomitant]
  5. CETIRIZINE [Concomitant]
  6. MICONAZOLE [Concomitant]

REACTIONS (8)
  - Dehydration [None]
  - Syncope [None]
  - Dizziness [None]
  - Fatigue [None]
  - Somnolence [None]
  - Dysuria [None]
  - Asthenia [None]
  - Headache [None]
